FAERS Safety Report 9384573 (Version 1)
Quarter: 2013Q3

REPORT INFORMATION
  Report Type: Spontaneous
  Country: US (occurrence: US)
  Receive Date: 20130705
  Receipt Date: 20130705
  Transmission Date: 20140515
  Serious: No
  Sender: FDA-Public Use
  Company Number: US-BAYER-2013-080539

PATIENT
  Sex: Female

DRUGS (2)
  1. YAZ [Suspect]
     Indication: ACNE
     Dosage: UNK
     Route: 048
     Dates: start: 2010, end: 20130624
  2. YAZ [Suspect]
     Indication: CONTRACEPTION

REACTIONS (2)
  - Menstruation delayed [Recovered/Resolved]
  - Drug dose omission [None]
